FAERS Safety Report 5542702-X (Version None)
Quarter: 2007Q4

REPORT INFORMATION
  Report Type: 
  Country: None (occurrence: None)
  Receive Date: 20071210
  Receipt Date: 20071127
  Transmission Date: 20080405
  Serious: Yes (Hospitalization, Other)
  Sender: FDA-Public Use
  Company Number: US-ELI_LILLY_AND_COMPANY-US200711000545

PATIENT
  Sex: Female
  Weight: 59.864 kg

DRUGS (13)
  1. FORTEO [Suspect]
     Dosage: UNK, UNK
     Dates: start: 20071101, end: 20071101
  2. FORTEO [Suspect]
     Dosage: 20 UG, DAILY (1/D)
     Route: 058
  3. DULCOLAX [Concomitant]
     Dosage: 10 MG, AS NEEDED
  4. ENABLEX                            /01760402/ [Concomitant]
     Dosage: 15 MG, EACH EVENING
  5. DEXTROSE [Concomitant]
     Indication: EMERGENCY CARE
     Dosage: UNK, AS NEEDED
  6. DURAGESIC-100 [Concomitant]
     Dosage: 50 UG, OTHER
  7. SYNTHROID [Concomitant]
     Dosage: 75 UG, DAILY (1/D)
  8. MILK OF MAGNESIA [Concomitant]
     Dosage: 30 ML, AS NEEDED
  9. METHADONE [Concomitant]
     Dosage: 5 MG, AS NEEDED
  10. REGLAN [Concomitant]
  11. MORPHINE [Concomitant]
     Dosage: UNK, AS NEEDED
     Route: 042
  12. PROTONIX [Concomitant]
     Dosage: 40 MG, DAILY (1/D)
  13. LEVEMIR [Concomitant]
     Dosage: UNK, DAILY (1/D)

REACTIONS (3)
  - ACCIDENTAL OVERDOSE [None]
  - CELLULITIS [None]
  - MEDICATION ERROR [None]
